FAERS Safety Report 6036270-6 (Version None)
Quarter: 2009Q1

REPORT INFORMATION
  Report Type: 
  Country: None (occurrence: None)
  Receive Date: 20090113
  Receipt Date: 20090106
  Transmission Date: 20090719
  Serious: Yes (Death, Other)
  Sender: FDA-Public Use
  Company Number: PHEH2007US10923

PATIENT
  Sex: Female
  Weight: 120 kg

DRUGS (11)
  1. ZOMETA [Suspect]
     Dosage: UNK
     Dates: start: 20020730, end: 20050301
  2. XELODA [Concomitant]
     Dosage: UNK
     Dates: start: 20050201
  3. KYTRIL [Concomitant]
  4. CIPRO [Concomitant]
     Dosage: 500 MG, QD
  5. FASLODEX [Concomitant]
  6. AROMASIN [Concomitant]
  7. FEMARA [Concomitant]
  8. AMBIEN [Concomitant]
  9. ZOLOFT [Concomitant]
  10. ADVIL LIQUI-GELS [Concomitant]
  11. RADIOTHERAPY [Concomitant]

REACTIONS (26)
  - ABSCESS [None]
  - ADENOCARCINOMA [None]
  - ANXIETY [None]
  - BONE DEBRIDEMENT [None]
  - BONE DISORDER [None]
  - BONE FRAGMENTATION [None]
  - DEATH [None]
  - DECREASED INTEREST [None]
  - DENTAL CARE [None]
  - DENTAL PROSTHESIS PLACEMENT [None]
  - GENERAL PHYSICAL HEALTH DETERIORATION [None]
  - JAW DISORDER [None]
  - MASTICATION DISORDER [None]
  - METASTASES TO BONE [None]
  - ORAL PAIN [None]
  - OSTEONECROSIS [None]
  - PAIN [None]
  - SEASONAL ALLERGY [None]
  - SECRETION DISCHARGE [None]
  - STOMATITIS [None]
  - SWELLING FACE [None]
  - TOOTH DISORDER [None]
  - TOOTH EXTRACTION [None]
  - TOOTH FRACTURE [None]
  - TOOTHACHE [None]
  - TUBERCULOSIS [None]
